FAERS Safety Report 4667155-5 (Version None)
Quarter: 2005Q2

REPORT INFORMATION
  Report Type: 
  Country: None (occurrence: None)
  Receive Date: 20050520
  Receipt Date: 20040504
  Transmission Date: 20051028
  Serious: Yes (Other)
  Sender: FDA-Public Use
  Company Number: PHEH2004US04927

PATIENT
  Age: 63 Year
  Sex: Female

DRUGS (34)
  1. ZOMETA [Suspect]
     Indication: METASTASES TO BONE
     Dosage: 4 MG, QMO
     Route: 042
     Dates: start: 20020311, end: 20031205
  2. CELEBREX [Concomitant]
     Dosage: 100 MG, BID
     Route: 042
  3. NEURONTIN [Concomitant]
     Dosage: 300 MG, TID
  4. ZOLOFT [Concomitant]
     Dosage: 100 MG, QD
  5. WARFARIN SODIUM [Concomitant]
     Dosage: 5 MG, QD
  6. POTASSIUM CHLORIDE [Concomitant]
  7. ZOFRON [Concomitant]
  8. ACIPHEX [Concomitant]
  9. TOPAL [Concomitant]
  10. HYDROCHLOROTHIAZIDE [Concomitant]
  11. DARVOCET-N 100 [Concomitant]
  12. CARAFATE [Concomitant]
  13. HYDROCODONE BITARTRATE [Concomitant]
  14. LOVENOX [Concomitant]
  15. VALIUM [Concomitant]
  16. ESOMEPRAZOLE [Concomitant]
  17. LEVAQUIN [Concomitant]
  18. DIFLUCAN [Concomitant]
  19. CIPROFLOXACIN HCL [Concomitant]
  20. DURAGESIC-100 [Concomitant]
  21. EPOGEN [Concomitant]
  22. ANZEMET [Concomitant]
  23. NEUPOGEN [Concomitant]
  24. ARANESP [Concomitant]
  25. NEULASTA [Concomitant]
  26. PEPCID [Concomitant]
  27. KYTRIL [Concomitant]
  28. DIPHENHYDRAMINE HCL [Concomitant]
  29. VINORELBINE TARTRATE [Concomitant]
     Dates: start: 20020411, end: 20020715
  30. TAXOTERE [Concomitant]
     Dates: start: 20020808, end: 20030626
  31. XELODA [Concomitant]
     Dates: start: 20020808, end: 20030123
  32. TAXOL [Concomitant]
     Dates: start: 20040105, end: 20040119
  33. CARBOPLATIN [Concomitant]
     Dates: start: 20040105, end: 20040119
  34. DECADRON [Concomitant]

REACTIONS (4)
  - ASEPTIC NECROSIS BONE [None]
  - DENTAL CARIES [None]
  - OSTEOMYELITIS ACUTE [None]
  - TOOTH EXTRACTION [None]
